FAERS Safety Report 22242326 (Version 1)
Quarter: 2023Q2

REPORT INFORMATION
  Report Type: Spontaneous
  Country: FR (occurrence: FR)
  Receive Date: 20230422
  Receipt Date: 20230422
  Transmission Date: 20230721
  Serious: Yes (Other)
  Sender: FDA-Public Use
  Company Number: FR-STRIDES ARCOLAB LIMITED-2023SP005697

PATIENT
  Sex: Male

DRUGS (6)
  1. FUROSEMIDE [Suspect]
     Active Substance: FUROSEMIDE
     Indication: Product used for unknown indication
     Dosage: UNK (THE PATIENT MOTHER RECEIVED FROM 60 TO 160 MG/DAY TO CONTROL VOLUME OVERLOAD) )
     Route: 064
  2. INSULIN NOS [Suspect]
     Active Substance: INSULIN NOS
     Indication: Product used for unknown indication
     Dosage: UNK (THE PATIENT MOTHER RECEIVED PUMP THERAPY DUE HER DIABETES)
     Route: 064
  3. BETAMETHASONE [Suspect]
     Active Substance: BETAMETHASONE
     Indication: Maternal therapy to enhance foetal lung maturity
     Dosage: UNK (THE PATIENT MOTHER RECEIVED BETAMETHASONE 12 MG/DAY FOR TWO DAYS FOR FETAL LUNG MATURATION INDU
     Route: 064
  4. NICARDIPINE [Suspect]
     Active Substance: NICARDIPINE
     Indication: Product used for unknown indication
     Dosage: UNK (THE PATIENT MOTHER RECEIVED 20 MILLIGRAM FOR HYPERTENSION)
     Route: 064
  5. LABETALOL [Suspect]
     Active Substance: LABETALOL\LABETALOL HYDROCHLORIDE
     Indication: Product used for unknown indication
     Dosage: UNK (THE PATIENT MOTHER RECEIVED 200 MILLIGRAM, EVERY 8 HOURS FOR HYPERTENSION)
     Route: 064
  6. HEPARIN CALCIUM [Suspect]
     Active Substance: HEPARIN CALCIUM
     Indication: Product used for unknown indication
     Dosage: UNK
     Route: 064

REACTIONS (3)
  - Premature baby [Unknown]
  - Low birth weight baby [Unknown]
  - Foetal exposure during pregnancy [Unknown]
